FAERS Safety Report 6712003-2 (Version None)
Quarter: 2010Q2

REPORT INFORMATION
  Report Type: 
  Country: None (occurrence: None)
  Receive Date: 20100505
  Receipt Date: 20100426
  Transmission Date: 20101027
  Serious: Yes (Life-Threatening, Hospitalization)
  Sender: FDA-Public Use
  Company Number: US-PFIZER INC-2010052246

PATIENT
  Sex: Male

DRUGS (9)
  1. ZITHROMAX [Suspect]
     Indication: UPPER RESPIRATORY TRACT INFECTION
     Dosage: UNK
  2. REVLIMID [Suspect]
     Indication: MULTIPLE MYELOMA
     Dosage: 25 MG, 1X/DAY
     Route: 048
     Dates: start: 20100114, end: 20100208
  3. LEVAQUIN [Suspect]
     Indication: URINARY TRACT INFECTION
     Dosage: UNK
     Route: 065
  4. HYZAAR [Concomitant]
     Dosage: 50/12.5
     Route: 065
  5. OMEPRAZOLE [Concomitant]
     Dosage: UNK, 1X/DAY
     Route: 065
  6. PRIMAXIN [Concomitant]
     Indication: SEPSIS
     Dosage: UNK
     Route: 042
     Dates: start: 20100201
  7. VANCOMYCIN [Concomitant]
     Indication: SEPSIS
     Dosage: UNK
     Route: 042
     Dates: start: 20100201
  8. BLOOD AND RELATED PRODUCTS [Concomitant]
     Dosage: 2 UNITS
     Route: 042
     Dates: start: 20100201
  9. LASIX [Concomitant]
     Indication: POLYURIA
     Dosage: UNK
     Route: 065
     Dates: start: 20100201

REACTIONS (4)
  - ANAEMIA [None]
  - CARDIAC FAILURE CONGESTIVE [None]
  - HYPOTENSION [None]
  - TUBULOINTERSTITIAL NEPHRITIS [None]
